FAERS Safety Report 5635034-2 (Version None)
Quarter: 2008Q1

REPORT INFORMATION
  Report Type: 
  Country: None (occurrence: None)
  Receive Date: 20080222
  Receipt Date: 20080214
  Transmission Date: 20080703
  Serious: Yes (Death)
  Sender: FDA-Public Use
  Company Number: GB-ABBOTT-07P-167-0372717-00

PATIENT
  Sex: Male
  Weight: 84 kg

DRUGS (9)
  1. HUMIRA [Suspect]
     Indication: RHEUMATOID ARTHRITIS
     Route: 058
     Dates: start: 20050308, end: 20050510
  2. ETANERCEPT [Suspect]
     Indication: RHEUMATOID ARTHRITIS
     Dates: start: 20050101, end: 20050308
  3. PREDNISOLONE [Concomitant]
     Indication: RHEUMATOID ARTHRITIS
  4. AMLODIPINE [Concomitant]
     Indication: DRUG USE FOR UNKNOWN INDICATION
  5. CELECOXIB [Concomitant]
     Indication: DRUG USE FOR UNKNOWN INDICATION
  6. ALENDRONATE SODIUM [Concomitant]
     Indication: DRUG USE FOR UNKNOWN INDICATION
  7. RISEDRONATE SODIUM [Concomitant]
     Indication: OSTEOPOROSIS
  8. ASPIRIN [Concomitant]
     Indication: CARDIOVASCULAR EVENT PROPHYLAXIS
  9. DIGOXIN [Concomitant]
     Indication: ATRIAL FIBRILLATION

REACTIONS (3)
  - B-CELL LYMPHOMA [None]
  - EXTRANODAL MARGINAL ZONE B-CELL LYMPHOMA (MALT TYPE) [None]
  - METASTATIC GASTRIC CANCER [None]
